FAERS Safety Report 5819014-X (Version None)
Quarter: 2008Q3

REPORT INFORMATION
  Report Type: 
  Country: None (occurrence: None)
  Receive Date: 20080721
  Receipt Date: 20080721
  Transmission Date: 20090109
  Serious: Yes (Other)
  Sender: FDA-Public Use
  Company Number: None

PATIENT
  Sex: Female
  Weight: 81.07 kg

DRUGS (1)
  1. DIPHENHYDRAMINE HCL [Suspect]
     Dosage: IV
     Route: 042

REACTIONS (2)
  - DIZZINESS [None]
  - HYPOTENSION [None]
